FAERS Safety Report 8213979-7 (Version None)
Quarter: 2012Q1

REPORT INFORMATION
  Report Type: 
  Country: None (occurrence: None)
  Receive Date: 20120316
  Receipt Date: 20120312
  Transmission Date: 20120608
  Serious: No
  Sender: FDA-Public Use
  Company Number: US-PFIZER INC-2012066080

PATIENT
  Sex: Male
  Weight: 99.773 kg

DRUGS (3)
  1. FLECTOR [Suspect]
     Indication: INFLAMMATION
     Dosage: 1.3 % EVERY 12 HOURS
     Dates: start: 20120307, end: 20120307
  2. FLECTOR [Suspect]
     Indication: PROCEDURAL PAIN
  3. PERCOCET [Concomitant]
     Indication: PROCEDURAL PAIN
     Dosage: 10 MG AS NEEDED

REACTIONS (2)
  - NAUSEA [None]
  - DIZZINESS [None]
